FAERS Safety Report 13378258 (Version 2)
Quarter: 2017Q2

REPORT INFORMATION
  Report Type: Spontaneous
  Country: JP (occurrence: JP)
  Receive Date: 20170328
  Receipt Date: 20170417
  Transmission Date: 20170830
  Serious: Yes (Hospitalization, Other)
  Sender: FDA-Public Use
  Company Number: JP-TEVA-753312ROM

PATIENT
  Age: 75 Year
  Sex: Male
  Weight: 51 kg

DRUGS (2)
  1. CARBOPLATIN. [Suspect]
     Active Substance: CARBOPLATIN
     Indication: SMALL CELL LUNG CANCER
     Dosage: AUC=5 ON DAY 1; REDUCED TO 80% OF ORIGINAL DOSE FOLLOWING INITIAL ADRS AND WITHDRAWN
     Route: 065
  2. ETOPOSIDE. [Suspect]
     Active Substance: ETOPOSIDE
     Indication: SMALL CELL LUNG CANCER
     Dosage: 100 MG/M 2 ON DAYS 1-3; REDUCED TO 80% OF THE ORIGINAL DOSE FOLLOWING INITIAL ADRS AND WITHDRAWN
     Route: 065

REACTIONS (4)
  - Platelet count decreased [Unknown]
  - Neutropenia [Unknown]
  - Anaemia [Unknown]
  - Decreased appetite [Unknown]
